FAERS Safety Report 5368041-8 (Version None)
Quarter: 2007Q2

REPORT INFORMATION
  Report Type: 
  Country: None (occurrence: None)
  Receive Date: 20070622
  Receipt Date: 20070611
  Transmission Date: 20071010
  Serious: Yes (Other)
  Sender: FDA-Public Use
  Company Number: US-PFIZER INC-2007048708

PATIENT
  Sex: Male
  Weight: 75 kg

DRUGS (4)
  1. CHANTIX [Suspect]
     Indication: SMOKING CESSATION THERAPY
  2. METOPROLOL SUCCINATE [Concomitant]
     Indication: HYPERTENSION
  3. GLUCOSAMINE W/CHONDROITIN SULFATES [Concomitant]
  4. VITAMIN CAP [Concomitant]

REACTIONS (4)
  - ABNORMAL DREAMS [None]
  - DRUG WITHDRAWAL SYNDROME [None]
  - EPISTAXIS [None]
  - MEDICATION ERROR [None]
